FAERS Safety Report 6348097-6 (Version None)
Quarter: 2009Q3

REPORT INFORMATION
  Report Type: 
  Country: None (occurrence: None)
  Receive Date: 20090904
  Receipt Date: 20090824
  Transmission Date: 20100115
  Serious: Yes (Death, Hospitalization)
  Sender: FDA-Public Use
  Company Number: B0590653A

PATIENT
  Age: 82 Year
  Sex: Female

DRUGS (2)
  1. DIGOXIN [Suspect]
  2. BETA-BLOCKER (FORMULATION UNKNOWN) (BETA-BLOCKER) [Suspect]

REACTIONS (4)
  - CARDIAC FAILURE [None]
  - MULTI-ORGAN FAILURE [None]
  - OVERDOSE [None]
  - THERAPEUTIC AGENT TOXICITY [None]
